FAERS Safety Report 21800643 (Version 1)
Quarter: 2022Q4

REPORT INFORMATION
  Report Type: Spontaneous
  Country: US (occurrence: US)
  Receive Date: 20221230
  Receipt Date: 20221230
  Transmission Date: 20230113
  Serious: No
  Sender: FDA-Public Use
  Company Number: US-009507513-2212USA009895

PATIENT
  Age: 47 Year
  Sex: Female

DRUGS (5)
  1. TEMODAR [Suspect]
     Active Substance: TEMOZOLOMIDE
     Indication: Pancreatic neuroendocrine tumour metastatic
     Dosage: UNK
     Dates: start: 201806
  2. LANREOTIDE [Concomitant]
     Active Substance: LANREOTIDE
     Indication: Pancreatic neuroendocrine tumour metastatic
  3. SUNITINIB [Concomitant]
     Active Substance: SUNITINIB
     Indication: Pancreatic neuroendocrine tumour metastatic
  4. BEVACIZUMAB [Concomitant]
     Active Substance: BEVACIZUMAB
     Indication: Pancreatic neuroendocrine tumour metastatic
     Dosage: UNK
     Dates: start: 201806
  5. CAPECITABINE [Concomitant]
     Active Substance: CAPECITABINE
     Indication: Pancreatic neuroendocrine tumour metastatic
     Dosage: UNK
     Dates: start: 201806

REACTIONS (1)
  - Product use in unapproved indication [Unknown]
